FAERS Safety Report 26184315 (Version 2)
Quarter: 2025Q4

REPORT INFORMATION
  Report Type: Spontaneous
  Country: US (occurrence: US)
  Receive Date: 20251222
  Receipt Date: 20251231
  Transmission Date: 20260118
  Serious: No
  Sender: TOLMAR
  Company Number: US-Tolmar-TLM-2025-09394

PATIENT

DRUGS (2)
  1. ELIGARD [Suspect]
     Active Substance: LEUPROLIDE ACETATE
     Indication: Prostate cancer
     Dosage: (BOX) LOT NUMBER 15187RCUS?EXPIRATION DATE 05-2026, ?SERIAL NUMBER 3660304217354, ?NDC NUMBER 629352
     Route: 065
  2. DEVICE [Suspect]
     Active Substance: DEVICE
     Indication: Prostate cancer
     Dosage: (BOX) LOT NUMBER 15187RCUS?EXPIRATION DATE 05-2026, ?SERIAL NUMBER 3660304217354, ?NDC NUMBER 629352

REACTIONS (3)
  - Product preparation error [Unknown]
  - Intercepted product preparation error [Unknown]
  - Product packaging quantity issue [Unknown]
